FAERS Safety Report 15371649 (Version 1)
Quarter: 2018Q3

REPORT INFORMATION
  Report Type: Spontaneous
  Country: GR (occurrence: GR)
  Receive Date: 20180911
  Receipt Date: 20180911
  Transmission Date: 20181010
  Serious: Yes (Other)
  Sender: FDA-Public Use
  Company Number: PHHY2018GR091096

PATIENT
  Age: 38 Year
  Sex: Male

DRUGS (2)
  1. TOBRAMYCIN AND DEXAMETHASONE [Suspect]
     Active Substance: DEXAMETHASONE\TOBRAMYCIN
     Indication: ADENOVIRAL CONJUNCTIVITIS
     Route: 065
  2. GANCICLOVIR. [Concomitant]
     Active Substance: GANCICLOVIR
     Indication: ADENOVIRAL CONJUNCTIVITIS
     Route: 065

REACTIONS (1)
  - Corneal opacity [Not Recovered/Not Resolved]
